FAERS Safety Report 8155870-0 (Version None)
Quarter: 2012Q1

REPORT INFORMATION
  Report Type: 
  Country: None (occurrence: None)
  Receive Date: 20120221
  Receipt Date: 20120221
  Transmission Date: 20120608
  Serious: Yes (Life-Threatening, Other)
  Sender: FDA-Public Use
  Company Number: None

PATIENT
  Sex: Female
  Weight: 51.7101 kg

DRUGS (2)
  1. BOTOX [Suspect]
     Indication: TORTICOLLIS
     Dosage: 400 UNITS EVERY 3 MONTHS INJECTIONS
     Dates: start: 20110907, end: 20111222
  2. BOTOX [Suspect]
     Indication: MIGRAINE
     Dosage: 400 UNITS EVERY 3 MONTHS INJECTIONS
     Dates: start: 20110907, end: 20111222

REACTIONS (9)
  - DYSKINESIA [None]
  - NAUSEA [None]
  - GASTROINTESTINAL DISORDER [None]
  - DYSPHAGIA [None]
  - DYSPNOEA [None]
  - DIPLOPIA [None]
  - VERTIGO [None]
  - MUSCULOSKELETAL DISORDER [None]
  - HYPOAESTHESIA [None]
